FAERS Safety Report 13835326 (Version 1)
Quarter: 2017Q3

REPORT INFORMATION
  Report Type: Spontaneous
  Country: SG (occurrence: SG)
  Receive Date: 20170804
  Receipt Date: 20170804
  Transmission Date: 20171127
  Serious: Yes (Other)
  Sender: FDA-Public Use
  Company Number: SG-BAYER-2017-146075

PATIENT

DRUGS (2)
  1. NEXAVAR [Suspect]
     Active Substance: SORAFENIB
     Indication: HEPATOCELLULAR CARCINOMA
     Dosage: 400 MG OM, 200 MG ON
  2. NEXAVAR [Suspect]
     Active Substance: SORAFENIB
     Indication: HEPATOCELLULAR CARCINOMA
     Dosage: 200 MG, BID

REACTIONS (8)
  - Tachycardia [None]
  - Drug dose omission [None]
  - Off label use [None]
  - Portal vein thrombosis [None]
  - Chest discomfort [None]
  - Abdominal discomfort [None]
  - Hepatocellular carcinoma [None]
  - Tumour marker increased [None]

NARRATIVE: CASE EVENT DATE: 201605
